FAERS Safety Report 14689955 (Version 1)
Quarter: 2018Q1

REPORT INFORMATION
  Report Type: Spontaneous
  Country: US (occurrence: US)
  Receive Date: 20180327
  Receipt Date: 20180327
  Transmission Date: 20180509
  Serious: Yes (Hospitalization)
  Sender: FDA-Public Use
  Company Number: None

PATIENT
  Age: 80 Year
  Sex: Male

DRUGS (5)
  1. XALKORI [Suspect]
     Active Substance: CRIZOTINIB
     Indication: LUNG NEOPLASM MALIGNANT
     Route: 048
     Dates: start: 20171127, end: 20180325
  2. ONDANSETRON 8MG ODT [Concomitant]
     Dates: start: 20180228, end: 20180325
  3. TARCEVA [Concomitant]
     Active Substance: ERLOTINIB HYDROCHLORIDE
     Dates: start: 20171027, end: 20180325
  4. DICYCLOMINE 20MG [Concomitant]
     Dates: start: 20180228, end: 20180325
  5. CIPROFLOXACIN. [Concomitant]
     Active Substance: CIPROFLOXACIN
     Dates: start: 20180228, end: 20180307

REACTIONS (4)
  - Dyspnoea [None]
  - Therapy cessation [None]
  - Hypersensitivity [None]
  - Pneumonitis [None]

NARRATIVE: CASE EVENT DATE: 20180327
